FAERS Safety Report 5312644-3 (Version None)
Quarter: 2007Q2

REPORT INFORMATION
  Report Type: 
  Country: None (occurrence: None)
  Receive Date: 20070430
  Receipt Date: 20070202
  Transmission Date: 20071010
  Serious: No
  Sender: FDA-Public Use
  Company Number: 2007UW02289

PATIENT
  Age: 60 Year
  Sex: Female
  Weight: 81.6 kg

DRUGS (2)
  1. NEXIUM [Suspect]
     Indication: GASTROOESOPHAGEAL REFLUX DISEASE
     Route: 048
  2. SINGULAIR [Concomitant]

REACTIONS (3)
  - HEADACHE [None]
  - MYALGIA [None]
  - OSTEOARTHRITIS [None]
